FAERS Safety Report 15546360 (Version 1)
Quarter: 2018Q4

REPORT INFORMATION
  Report Type: Spontaneous
  Country: None (occurrence: US)
  Receive Date: 20181024
  Receipt Date: 20181024
  Transmission Date: 20190205
  Serious: No
  Sender: FDA-Public Use
  Company Number: US-XTTRIUM LABORATORIES, INC-2056953

PATIENT
  Sex: Female

DRUGS (1)
  1. CHLORHEXIDINE GLUCONATE. [Suspect]
     Active Substance: CHLORHEXIDINE GLUCONATE
     Indication: TOOTH EXTRACTION
     Route: 048
     Dates: start: 20181003, end: 20181010

REACTIONS (4)
  - Ageusia [Unknown]
  - Oral discomfort [Unknown]
  - Sensitivity of teeth [Unknown]
  - Lip swelling [Unknown]

NARRATIVE: CASE EVENT DATE: 20181003
